FAERS Safety Report 12651706 (Version 15)
Quarter: 2017Q1

REPORT INFORMATION
  Report Type: Report from Study
  Country: DE (occurrence: DE)
  Receive Date: 20160815
  Receipt Date: 20170126
  Transmission Date: 20170428
  Serious: Yes (Life-Threatening, Hospitalization, Other)
  Sender: FDA-Public Use
  Company Number: DE-CELGENEUS-DEU-2016074834

PATIENT
  Age: 76 Year
  Sex: Male
  Weight: 92 kg

DRUGS (34)
  1. ABRAXANE [Suspect]
     Active Substance: PACLITAXEL
     Dosage: 205 MG
     Route: 041
  2. CARBOPLATIN. [Suspect]
     Active Substance: CARBOPLATIN
     Dosage: 6 MG/ML/MIN?855MG
     Route: 041
  3. ONDANSETRON [Concomitant]
     Active Substance: ONDANSETRON
     Indication: PROPHYLAXIS
     Route: 065
     Dates: start: 20160419
  4. CLEXANE [Concomitant]
     Active Substance: ENOXAPARIN SODIUM
     Route: 065
     Dates: start: 20160517, end: 20160517
  5. SALBUTAMOL [Concomitant]
     Active Substance: ALBUTEROL
     Indication: PROPHYLAXIS
     Route: 065
     Dates: start: 20161026
  6. TOREM [Concomitant]
     Active Substance: TORSEMIDE
     Indication: HYPERTENSION
     Dosage: NOT PROVIDED
     Route: 065
  7. NOVALGIN [Concomitant]
     Active Substance: METAMIZOLE SODIUM
     Indication: MUSCULOSKELETAL CHEST PAIN
     Dosage: NOT PROVIDED
     Route: 065
  8. CLEXANE [Concomitant]
     Active Substance: ENOXAPARIN SODIUM
     Indication: PROPHYLAXIS
     Route: 065
     Dates: start: 20160712, end: 20160721
  9. CLEXANE [Concomitant]
     Active Substance: ENOXAPARIN SODIUM
     Route: 065
     Dates: start: 20161026
  10. MAGNESIUM [Concomitant]
     Active Substance: MAGNESIUM
     Indication: HYPOMAGNESAEMIA
     Route: 065
  11. ATROVENT [Concomitant]
     Active Substance: IPRATROPIUM BROMIDE
     Indication: PROPHYLAXIS
     Route: 065
  12. STARLIX [Concomitant]
     Active Substance: NATEGLINIDE
     Indication: DIABETES MELLITUS
     Dosage: NOT PROVIDED
     Route: 065
  13. EFFENTORA [Concomitant]
     Active Substance: FENTANYL CITRATE
     Indication: METASTASES TO BONE
  14. ABRAXANE [Suspect]
     Active Substance: PACLITAXEL
     Indication: NON-SMALL CELL LUNG CANCER
     Dosage: 205 MG
     Route: 041
     Dates: start: 20160419, end: 20160510
  15. ERYTHROCYTE [Concomitant]
     Dosage: 1 UNIT
     Route: 065
     Dates: start: 20161229, end: 20161229
  16. MPDL3280A (ATEZOLIZUMAB) [Suspect]
     Active Substance: ATEZOLIZUMAB
     Indication: NON-SMALL CELL LUNG CANCER
     Dosage: 1200MG
     Route: 041
     Dates: start: 20160419, end: 20160620
  17. CARBOPLATIN. [Suspect]
     Active Substance: CARBOPLATIN
     Indication: NON-SMALL CELL LUNG CANCER
     Dosage: 6 MG/ML/MIN?855MG
     Route: 041
     Dates: start: 20160419, end: 20160510
  18. SIMVASTATIN. [Concomitant]
     Active Substance: SIMVASTATIN
     Indication: DIABETES MELLITUS
     Dosage: NOT PROVIDED
     Route: 065
  19. PANTOPRAZOL [Concomitant]
     Active Substance: PANTOPRAZOLE SODIUM
     Indication: PROPHYLAXIS
     Route: 065
  20. FENTANYL. [Concomitant]
     Active Substance: FENTANYL
     Indication: MUSCULOSKELETAL CHEST PAIN
     Route: 065
  21. HALDOL [Concomitant]
     Active Substance: HALOPERIDOL
     Indication: NAUSEA
     Route: 065
     Dates: start: 20160715, end: 20160913
  22. MOMECUTAN FURAT [Concomitant]
     Indication: LEUKOPENIA
     Route: 065
     Dates: start: 20160422, end: 20160517
  23. NIFEHEXAL [Concomitant]
     Indication: HYPERTENSIVE HEART DISEASE
     Dosage: NOT PROVIDED
     Route: 065
  24. PAMIDRONATE [Concomitant]
     Active Substance: PAMIDRONATE DISODIUM
     Indication: METASTASES TO BONE
     Route: 065
     Dates: start: 20160201
  25. METFORMIN [Concomitant]
     Active Substance: METFORMIN HYDROCHLORIDE
     Indication: DIABETES MELLITUS
     Route: 065
     Dates: start: 20160426
  26. CALCILAC [Concomitant]
     Active Substance: CALCIUM CARBONATE
     Indication: METASTASES TO BONE
     Route: 065
     Dates: start: 20160530
  27. METOCLOPRAMIDE. [Concomitant]
     Active Substance: METOCLOPRAMIDE
     Indication: NAUSEA
     Route: 065
     Dates: start: 20160510
  28. ERYTHROCYTE [Concomitant]
     Indication: PRODUCT USED FOR UNKNOWN INDICATION
     Dosage: 1 UNIT
     Route: 065
     Dates: start: 20161228, end: 20161228
  29. EFFENTORA [Concomitant]
     Active Substance: FENTANYL CITRATE
     Indication: MUSCULOSKELETAL CHEST PAIN
     Dosage: NOT PROVIDED
     Route: 065
     Dates: start: 20160717
  30. IMERON-350 [Concomitant]
     Indication: PRODUCT USED FOR UNKNOWN INDICATION
     Route: 065
     Dates: start: 20161027, end: 20161027
  31. MPDL3280A (ATEZOLIZUMAB) [Suspect]
     Active Substance: ATEZOLIZUMAB
     Dosage: 1200MG
     Route: 041
  32. RATIOGRASTIM [Concomitant]
     Active Substance: FILGRASTIM
     Indication: LEUKOPENIA
     Route: 065
     Dates: start: 20160422, end: 20160517
  33. VERGENTAN [Concomitant]
     Active Substance: ALIZAPRIDE HYDROCHLORIDE
     Indication: PROPHYLAXIS
     Route: 065
     Dates: start: 20160426, end: 20160503
  34. FOLSAN [Concomitant]
     Active Substance: FOLIC ACID
     Indication: PROPHYLAXIS
     Route: 065
     Dates: start: 20161026

REACTIONS (4)
  - Respiratory tract infection [Recovered/Resolved]
  - Tumour pain [Not Recovered/Not Resolved]
  - Urinary tract infection [Recovered/Resolved]
  - Cholestasis [Recovered/Resolved]

NARRATIVE: CASE EVENT DATE: 20160517
